FAERS Safety Report 8533605-7 (Version None)
Quarter: 2012Q3

REPORT INFORMATION
  Report Type: 
  Country: None (occurrence: None)
  Receive Date: 20120724
  Receipt Date: 20120717
  Transmission Date: 20120928
  Serious: Yes (Hospitalization)
  Sender: FDA-Public Use
  Company Number: CA-JNJFOC-20120705734

PATIENT
  Sex: Male
  Weight: 67 kg

DRUGS (2)
  1. REMICADE [Suspect]
     Indication: CROHN'S DISEASE
     Route: 042
     Dates: start: 20091101
  2. REMICADE [Suspect]
     Route: 042
     Dates: end: 20120711

REACTIONS (6)
  - SURGERY [None]
  - ABDOMINAL PAIN UPPER [None]
  - ASTHENIA [None]
  - PYREXIA [None]
  - PALLOR [None]
  - INFECTION [None]
